FAERS Safety Report 16388630 (Version 1)
Quarter: 2019Q2

REPORT INFORMATION
  Report Type: Spontaneous
  Country: LB (occurrence: LB)
  Receive Date: 20190604
  Receipt Date: 20190604
  Transmission Date: 20190711
  Serious: Yes (Other)
  Sender: FDA-Public Use
  Company Number: LB-PFIZER INC-2019236608

PATIENT
  Age: 51 Year
  Sex: Female

DRUGS (2)
  1. PALBOCICLIB [Suspect]
     Active Substance: PALBOCICLIB
     Dosage: 125 MG, (FOR 2 MONTHS)
  2. LETROZOLE. [Suspect]
     Active Substance: LETROZOLE
     Dosage: (FOR 2 MONTHS)

REACTIONS (1)
  - Perforated ulcer [Unknown]
